FAERS Safety Report 4748889-0 (Version None)
Quarter: 2005Q3

REPORT INFORMATION
  Report Type: 
  Country: None (occurrence: None)
  Receive Date: 20050812
  Receipt Date: 20050429
  Transmission Date: 20060218
  Serious: Yes (Other)
  Sender: FDA-Public Use
  Company Number: 353148

PATIENT
  Age: 46 Year
  Sex: Female
  Weight: 88 kg

DRUGS (5)
  1. PEGASYS [Suspect]
     Indication: HEPATITIS C
     Dosage: 180 MCG 1 PER WEEK SUBCUTANEOUS
     Route: 058
     Dates: start: 20030729, end: 20050322
  2. COPEGUS [Suspect]
     Indication: HEPATITIS C
     Dosage: 2 DOSE FORM 2 PER DAY ORAL
     Route: 048
     Dates: start: 20030729, end: 20050322
  3. BENICAR [Concomitant]
  4. AMARYL [Concomitant]
  5. AVEENO (EMOLLIENTS AND PROTECTIVES/OATMEAL, COLLOIDAL) [Concomitant]

REACTIONS (37)
  - ALANINE AMINOTRANSFERASE INCREASED [None]
  - ANGER [None]
  - ANOREXIA [None]
  - ARTHRALGIA [None]
  - ASPARTATE AMINOTRANSFERASE INCREASED [None]
  - BLOOD GLUCOSE INCREASED [None]
  - BRONCHITIS ACUTE [None]
  - BURNING SENSATION [None]
  - COUGH [None]
  - DIARRHOEA [None]
  - DIZZINESS [None]
  - DYSPNOEA [None]
  - FATIGUE [None]
  - FRONTAL SINUS OPERATIONS [None]
  - HEADACHE [None]
  - INJECTION SITE ERYTHEMA [None]
  - INJECTION SITE HAEMORRHAGE [None]
  - INJECTION SITE PRURITUS [None]
  - INSOMNIA [None]
  - IRRITABILITY [None]
  - LYMPHADENOPATHY [None]
  - MASS [None]
  - MENTAL IMPAIRMENT [None]
  - MUSCLE SPASMS [None]
  - MYALGIA [None]
  - NASAL SINUS DRAINAGE [None]
  - PAIN [None]
  - PLATELET COUNT DECREASED [None]
  - POSTNASAL DRIP [None]
  - PYREXIA [None]
  - RASH [None]
  - RHINORRHOEA [None]
  - SINUS CONGESTION [None]
  - SINUSITIS [None]
  - VIRAL LOAD INCREASED [None]
  - VISION BLURRED [None]
  - WEIGHT DECREASED [None]
